FAERS Safety Report 8021574-8 (Version None)
Quarter: 2012Q1

REPORT INFORMATION
  Report Type: 
  Country: None (occurrence: None)
  Receive Date: 20120104
  Receipt Date: 20111229
  Transmission Date: 20120608
  Serious: Yes (Other)
  Sender: FDA-Public Use
  Company Number: US-TEVA-315312USA

PATIENT
  Sex: Male

DRUGS (2)
  1. CLARAVIS [Suspect]
     Dosage: 80 MILLIGRAM;
     Dates: start: 20110501, end: 20110701
  2. CLARAVIS [Suspect]
     Dosage: 40 MILLIGRAM;
     Dates: start: 20110701, end: 20111001

REACTIONS (7)
  - GRANULOMA [None]
  - PSEUDOMONAS INFECTION [None]
  - HAEMORRHAGE [None]
  - STAPHYLOCOCCAL INFECTION [None]
  - LOCALISED INFECTION [None]
  - INFECTION [None]
  - PAIN IN EXTREMITY [None]
